FAERS Safety Report 25433215 (Version 1)
Quarter: 2025Q2

REPORT INFORMATION
  Report Type: Other
  Country: DE (occurrence: DE)
  Receive Date: 20250613
  Receipt Date: 20250613
  Transmission Date: 20250716
  Serious: Yes (Hospitalization, Other)
  Sender: MACLEODS
  Company Number: None

PATIENT

DRUGS (20)
  1. CELECOXIB [Suspect]
     Active Substance: CELECOXIB
     Indication: Ankylosing spondylitis
     Route: 065
     Dates: start: 20190101, end: 20190501
  2. CELECOXIB [Suspect]
     Active Substance: CELECOXIB
     Indication: Axial spondyloarthritis
     Dosage: INTERVAL OF 0.25 WEEK, 7 DAYS PER WEEK
     Route: 065
     Dates: start: 20190101, end: 20190501
  3. CELECOXIB [Suspect]
     Active Substance: CELECOXIB
     Dosage: INTERVAL OF 0.14 WEEK, 7 DAYS PER WEEK
     Route: 065
     Dates: start: 20191107, end: 20201215
  4. CELECOXIB [Suspect]
     Active Substance: CELECOXIB
     Dosage: INTERVAL OF 0.14 WEEK, 7 DAYS PER WEEK
     Route: 065
     Dates: start: 20170918, end: 20181105
  5. INFLIXIMAB [Suspect]
     Active Substance: INFLIXIMAB
     Indication: Ankylosing spondylitis
     Route: 048
     Dates: start: 20120101, end: 20181105
  6. INFLIXIMAB [Suspect]
     Active Substance: INFLIXIMAB
     Indication: Axial spondyloarthritis
     Route: 048
     Dates: start: 20120404
  7. INFLIXIMAB [Suspect]
     Active Substance: INFLIXIMAB
     Route: 065
     Dates: start: 20190915, end: 20190930
  8. INFLIXIMAB [Suspect]
     Active Substance: INFLIXIMAB
     Route: 065
     Dates: start: 20211015, end: 20220710
  9. INFLECTRA [Suspect]
     Active Substance: INFLIXIMAB-DYYB
     Indication: Ankylosing spondylitis
     Route: 065
     Dates: start: 20220807
  10. INFLECTRA [Suspect]
     Active Substance: INFLIXIMAB-DYYB
     Indication: Axial spondyloarthritis
  11. NAPROXEN [Suspect]
     Active Substance: NAPROXEN
     Indication: Axial spondyloarthritis
     Dosage: QD-  7 DAYS PER WEEK
     Route: 065
     Dates: start: 20210608, end: 20220715
  12. SIMPONI [Suspect]
     Active Substance: GOLIMUMAB
     Indication: Ankylosing spondylitis
     Route: 058
     Dates: start: 20180226, end: 20191010
  13. SIMPONI [Suspect]
     Active Substance: GOLIMUMAB
     Indication: Axial spondyloarthritis
     Route: 058
     Dates: start: 20191128
  14. SIMPONI [Suspect]
     Active Substance: GOLIMUMAB
     Route: 058
     Dates: start: 20210615, end: 20210815
  15. SIMPONI [Suspect]
     Active Substance: GOLIMUMAB
     Route: 058
     Dates: start: 20200502, end: 20210515
  16. METHOTREXATE [Suspect]
     Active Substance: METHOTREXATE
     Indication: Ankylosing spondylitis
     Route: 048
     Dates: start: 20120101
  17. METHOTREXATE [Suspect]
     Active Substance: METHOTREXATE
     Route: 048
     Dates: start: 20120101, end: 20181115
  18. METHOTREXATE [Suspect]
     Active Substance: METHOTREXATE
     Route: 048
     Dates: start: 20210915
  19. METHOTREXATE [Suspect]
     Active Substance: METHOTREXATE
     Route: 048
  20. ACEMETACIN [Concomitant]
     Active Substance: ACEMETACIN
     Indication: Product used for unknown indication
     Route: 065
     Dates: start: 20181105, end: 20181108

REACTIONS (18)
  - Polyarthritis [Unknown]
  - Multiple sclerosis [Unknown]
  - Osteochondrosis [Recovered/Resolved]
  - Intervertebral disc protrusion [Recovered/Resolved]
  - Rotator cuff syndrome [Recovered/Resolved]
  - Postoperative adhesion [Recovered/Resolved]
  - Hypertonic bladder [Unknown]
  - Axial spondyloarthritis [Recovered/Resolved]
  - Residual urine volume increased [Recovered/Resolved]
  - Back pain [Recovered/Resolved]
  - Urinary tract infection [Unknown]
  - Functional gastrointestinal disorder [Unknown]
  - Ovarian cyst [Unknown]
  - Laryngitis [Unknown]
  - Upper respiratory tract infection [Unknown]
  - Rash [Unknown]
  - Gastritis [Unknown]
  - Off label use [Unknown]

NARRATIVE: CASE EVENT DATE: 20190304
